FAERS Safety Report 24237269 (Version 1)
Quarter: 2024Q3

REPORT INFORMATION
  Report Type: Spontaneous
  Country: US (occurrence: US)
  Receive Date: 20240822
  Receipt Date: 20240822
  Transmission Date: 20241017
  Serious: Yes (Other)
  Sender: GREER
  Company Number: US-GREER Laboratories, Inc.-2160701

PATIENT
  Age: 40 Year
  Sex: Male
  Weight: 88.636 kg

DRUGS (8)
  1. 7 GRASS MIX [Suspect]
     Active Substance: AGROSTIS GIGANTEA POLLEN\ANTHOXANTHUM ODORATUM\DACTYLIS GLOMERATA\FESTUCA PRATENSIS\LOLIUM PERENNE\P
     Indication: Rhinitis allergic
     Route: 058
  2. STANDARDIZED CAT HAIR [Suspect]
     Active Substance: FELIS CATUS HAIR
     Route: 058
  3. FLONASE [Concomitant]
     Active Substance: FLUTICASONE PROPIONATE
  4. MOLD MIX 3 [Suspect]
     Active Substance: ALTERNARIA ALTERNATA\ASPERGILLUS NIGER VAR. NIGER\CLADOSPORIUM SPHAEROSPERMUM\PENICILLIUM CHRYSOGENU
     Route: 058
  5. STANDARDIZED MITE MIX [Suspect]
     Active Substance: DERMATOPHAGOIDES FARINAE\DERMATOPHAGOIDES PTERONYSSINUS
     Route: 058
  6. COMMON WEED MIX [Suspect]
     Active Substance: AMARANTHUS RETROFLEXUS POLLEN\CHENOPODIUM ALBUM POLLEN\PLANTAGO LANCEOLATA POLLEN\SALSOLA KALI POLLE
     Route: 058
  7. PECAN POLLEN [Suspect]
     Active Substance: CARYA ILLINOINENSIS POLLEN
     Route: 058
  8. AMERICAN COCKROACH [Suspect]
     Active Substance: PERIPLANETA AMERICANA
     Route: 058

REACTIONS (3)
  - Cough [Recovered/Resolved]
  - Injection site pruritus [Recovered/Resolved]
  - Throat irritation [Recovered/Resolved]

NARRATIVE: CASE EVENT DATE: 20240720
